FAERS Safety Report 5103984-1 (Version None)
Quarter: 2006Q3

REPORT INFORMATION
  Report Type: 
  Country: None (occurrence: None)
  Receive Date: 20060908
  Receipt Date: 20060905
  Transmission Date: 20061208
  Serious: Yes (Hospitalization)
  Sender: FDA-Public Use
  Company Number: 2006-02312

PATIENT
  Age: 69 Year
  Sex: Male
  Weight: 90.7 kg

DRUGS (2)
  1. VELCADE [Suspect]
     Indication: MULTIPLE MYELOMA
     Dosage: IV BOLUS
     Route: 040
     Dates: start: 20060701, end: 20060822
  2. MORPHINE [Concomitant]

REACTIONS (4)
  - CEREBELLAR ATAXIA [None]
  - DEHYDRATION [None]
  - FALL [None]
  - PYREXIA [None]
